FAERS Safety Report 17306055 (Version 1)
Quarter: 2020Q1

REPORT INFORMATION
  Report Type: Spontaneous
  Country: JP (occurrence: JP)
  Receive Date: 20200123
  Receipt Date: 20200123
  Transmission Date: 20200409
  Serious: Yes (Other)
  Sender: FDA-Public Use
  Company Number: JP-ROCHE-2528472

PATIENT
  Age: 56 Year
  Sex: Male

DRUGS (13)
  1. AMBROXOL HYDROCHLORIDE [Concomitant]
     Active Substance: AMBROXOL HYDROCHLORIDE
  2. CHLORPHENIRAMINE MALEATE. [Concomitant]
     Active Substance: CHLORPHENIRAMINE MALEATE
  3. ATORVASTATIN [Concomitant]
     Active Substance: ATORVASTATIN
     Route: 048
  4. LACTOMIN [Concomitant]
     Active Substance: LACTOBACILLUS ACIDOPHILUS
     Route: 048
  5. RIZE [CLOTIAZEPAM] [Suspect]
     Active Substance: CLOTIAZEPAM
     Indication: AUTONOMIC NERVOUS SYSTEM IMBALANCE
     Route: 048
  6. AMLODIPINE BESILATE [Concomitant]
     Active Substance: AMLODIPINE BESYLATE
     Route: 048
  7. TERNELIN [Concomitant]
     Active Substance: TIZANIDINE
     Route: 048
  8. GAMMA ORYZANOL [Concomitant]
     Active Substance: GAMMA ORYZANOL
     Route: 048
  9. XOFLUZA [Suspect]
     Active Substance: BALOXAVIR MARBOXIL
     Indication: INFLUENZA
     Route: 048
     Dates: start: 20191227, end: 20191227
  10. ASVERIN (TIPEPIDINE HIBENZATE) [Concomitant]
     Active Substance: TIPEPIDINE HIBENZATE
  11. METHYLEPHEDRINE [Concomitant]
     Active Substance: METHYLEPHEDRINE
  12. FEBURIC [Concomitant]
     Active Substance: FEBUXOSTAT
     Route: 048
  13. ETIZOLAM [Concomitant]
     Active Substance: ETIZOLAM
     Route: 048

REACTIONS (1)
  - Loss of consciousness [Recovered/Resolved]

NARRATIVE: CASE EVENT DATE: 20191229
